FAERS Safety Report 22114819 (Version 1)
Quarter: 2023Q1

REPORT INFORMATION
  Report Type: Spontaneous
  Country: US (occurrence: US)
  Receive Date: 20230320
  Receipt Date: 20230320
  Transmission Date: 20230418
  Serious: No
  Sender: FDA-Public Use
  Company Number: US-SANOFI-01533870

PATIENT
  Age: 72 Year
  Sex: Female

DRUGS (3)
  1. LANTUS SOLOSTAR [Suspect]
     Active Substance: INSULIN GLARGINE
     Dosage: UNITS AT NIGHT AND 5 UNITS IN THE MORNING, BID
     Dates: start: 202204
  2. METFORMIN [Concomitant]
     Active Substance: METFORMIN HYDROCHLORIDE
     Dosage: UNK
  3. JANUVIA [Concomitant]
     Active Substance: SITAGLIPTIN PHOSPHATE
     Dosage: UNK

REACTIONS (11)
  - Hypoaesthesia oral [Unknown]
  - Stress [Unknown]
  - Anxiety [Unknown]
  - Skin depigmentation [Unknown]
  - Contusion [Unknown]
  - Injection site bruising [Unknown]
  - Blood glucose increased [Unknown]
  - Blood glucose decreased [Unknown]
  - Glycosylated haemoglobin increased [Unknown]
  - Off label use [Unknown]
  - Inappropriate schedule of product administration [Unknown]
